FAERS Safety Report 9176897 (Version 3)
Quarter: 2013Q2

REPORT INFORMATION
  Report Type: Report from Study
  Country: DE (occurrence: DE)
  Receive Date: 20130321
  Receipt Date: 20130617
  Transmission Date: 20140414
  Serious: Yes (Hospitalization, Other)
  Sender: FDA-Public Use
  Company Number: PHHY2013DE027278

PATIENT
  Age: 76 Year
  Sex: Male

DRUGS (2)
  1. EXELON PATCH [Suspect]
     Indication: DEMENTIA ALZHEIMER^S TYPE
     Dosage: 4.6 MG/24 HRS
     Route: 062
     Dates: start: 200909
  2. AXURA [Concomitant]
     Dosage: UNK UKN, UNK

REACTIONS (7)
  - Urethral haemorrhage [Not Recovered/Not Resolved]
  - Urinary retention [Unknown]
  - Abdominal distension [Unknown]
  - Pain [Unknown]
  - General physical health deterioration [Not Recovered/Not Resolved]
  - Hypophagia [Not Recovered/Not Resolved]
  - Mental impairment [Not Recovered/Not Resolved]
